FAERS Safety Report 14534948 (Version 1)
Quarter: 2018Q1

REPORT INFORMATION
  Report Type: Spontaneous
  Country: US (occurrence: US)
  Receive Date: 20180215
  Receipt Date: 20180215
  Transmission Date: 20180509
  Serious: Yes (Other)
  Sender: FDA-Public Use
  Company Number: US-JNJFOC-20180202392

PATIENT
  Sex: Female

DRUGS (15)
  1. IMBRUVICA [Suspect]
     Active Substance: IBRUTINIB
     Indication: WALDENSTROM^S MACROGLOBULINAEMIA
     Route: 048
     Dates: start: 20171201
  2. PRILOSEC [Concomitant]
     Active Substance: OMEPRAZOLE MAGNESIUM
     Route: 048
  3. MOBIC [Concomitant]
     Active Substance: MELOXICAM
     Dosage: 7.5 MG, QD WITH FOOD
  4. IMBRUVICA [Suspect]
     Active Substance: IBRUTINIB
     Indication: WALDENSTROM^S MACROGLOBULINAEMIA
     Route: 048
  5. CRESTOR [Concomitant]
     Active Substance: ROSUVASTATIN CALCIUM
  6. MIRALAX [Concomitant]
     Active Substance: POLYETHYLENE GLYCOL 3350
     Route: 048
  7. METAMUCIL [Concomitant]
     Active Substance: PLANTAGO SEED
     Dosage: 1 PACKET BY MOUTH DAILY
     Route: 048
  8. COREG [Concomitant]
     Active Substance: CARVEDILOL
     Dosage: 3.125 MG, BID WITH MEALS
     Route: 048
  9. ASPIRIN. [Concomitant]
     Active Substance: ASPIRIN
     Route: 048
  10. MAGNESIUM [Concomitant]
     Active Substance: MAGNESIUM
     Route: 048
  11. NITROSTAT [Concomitant]
     Active Substance: NITROGLYCERIN
     Indication: CHEST PAIN
     Route: 060
  12. NORVASC [Concomitant]
     Active Substance: AMLODIPINE BESYLATE
     Route: 048
  13. MOTRIN [Concomitant]
     Active Substance: IBUPROFEN
     Dosage: EVERY 6 HOURS AS NEEDED
     Route: 048
  14. PREVACID [Concomitant]
     Active Substance: LANSOPRAZOLE
     Route: 048
  15. COZAAR [Concomitant]
     Active Substance: LOSARTAN POTASSIUM
     Route: 048

REACTIONS (2)
  - Squamous cell carcinoma of skin [Recovering/Resolving]
  - Procedural pain [Recovering/Resolving]
